FAERS Safety Report 16863260 (Version 2)
Quarter: 2020Q4

REPORT INFORMATION
  Report Type: Spontaneous
  Country: US (occurrence: US)
  Receive Date: 20190927
  Receipt Date: 20201002
  Transmission Date: 20210113
  Serious: No
  Sender: FDA-Public Use
  Company Number: US-SA-2019SA264408

PATIENT

DRUGS (1)
  1. DUPIXENT [Suspect]
     Active Substance: DUPILUMAB
     Dosage: 300 MG, OTHER
     Route: 058
     Dates: start: 201908

REACTIONS (3)
  - Ocular hyperaemia [Unknown]
  - Eye pruritus [Unknown]
  - Alopecia [Unknown]

NARRATIVE: CASE EVENT DATE: 20190902
